FAERS Safety Report 6933425-0 (Version None)
Quarter: 2010Q3

REPORT INFORMATION
  Report Type: 
  Country: None (occurrence: None)
  Receive Date: 20100820
  Receipt Date: 20100806
  Transmission Date: 20110219
  Serious: Yes (Other)
  Sender: FDA-Public Use
  Company Number: US-ELI_LILLY_AND_COMPANY-US201008002354

PATIENT
  Sex: Female

DRUGS (11)
  1. FORTEO [Suspect]
     Indication: OSTEOPOROSIS
     Dosage: UNK, DAILY (1/D)
     Dates: start: 20090508
  2. CYMBALTA [Concomitant]
  3. NEXIUM [Concomitant]
  4. AVAPRO [Concomitant]
  5. ASPIRIN [Concomitant]
     Dosage: 81 MG, UNKNOWN
  6. CALCIUM W/VITAMIN D NOS [Concomitant]
  7. LIPITOR [Concomitant]
  8. FISH OIL [Concomitant]
  9. VITAMIN D [Concomitant]
  10. ARICEPT [Concomitant]
  11. SENOKOT [Concomitant]

REACTIONS (10)
  - ACCIDENTAL OVERDOSE [None]
  - CARDIAC FAILURE CONGESTIVE [None]
  - DEHYDRATION [None]
  - DEMENTIA [None]
  - DEMENTIA ALZHEIMER'S TYPE [None]
  - INCONTINENCE [None]
  - MEDICATION ERROR [None]
  - PNEUMONIA [None]
  - RIB FRACTURE [None]
  - UNRESPONSIVE TO STIMULI [None]
